FAERS Safety Report 23893742 (Version 1)
Quarter: 2024Q2

REPORT INFORMATION
  Report Type: Spontaneous
  Country: US (occurrence: None)
  Receive Date: 20240524
  Receipt Date: 20240524
  Transmission Date: 20240716
  Serious: No
  Sender: FDA-Public Use
  Company Number: US-ROCHE-3356028

PATIENT
  Age: 87 Year
  Sex: Female
  Weight: 61.29 kg

DRUGS (4)
  1. ACTEMRA [Suspect]
     Active Substance: TOCILIZUMAB
     Indication: Rheumatoid arthritis
     Dosage: EVERY OTHER TUESDAY ;ONGOING: YES
     Route: 058
     Dates: start: 2023
  2. OXYCODONE [Concomitant]
     Active Substance: OXYCODONE\OXYCODONE HYDROCHLORIDE
     Indication: Pain
     Route: 048
  3. CALTRATE [Concomitant]
     Active Substance: CALCIUM CARBONATE
  4. LISINOPRIL [Concomitant]
     Active Substance: LISINOPRIL

REACTIONS (5)
  - Product quality issue [Unknown]
  - Device issue [Unknown]
  - No adverse event [Unknown]
  - Wrong technique in device usage process [Unknown]
  - Wrong technique in product usage process [Unknown]

NARRATIVE: CASE EVENT DATE: 20230101
